FAERS Safety Report 4473435-9 (Version None)
Quarter: 2004Q4

REPORT INFORMATION
  Report Type: 
  Country: None (occurrence: None)
  Receive Date: 20040920
  Receipt Date: 20030731
  Transmission Date: 20050328
  Serious: Yes (Death)
  Sender: FDA-Public Use
  Company Number: S03-USA-03339-01

PATIENT
  Sex: Male

DRUGS (2)
  1. CELEXA [Suspect]
  2. OXYCONTIN [Suspect]

REACTIONS (1)
  - DEATH [None]
